FAERS Safety Report 19001717 (Version 1)
Quarter: 2021Q1

REPORT INFORMATION
  Report Type: Spontaneous
  Country: US (occurrence: US)
  Receive Date: 20210312
  Receipt Date: 20210312
  Transmission Date: 20210420
  Serious: No
  Sender: FDA-Public Use
  Company Number: US-FARMAPROD-202012-1766

PATIENT
  Sex: Female
  Weight: 65.83 kg

DRUGS (6)
  1. CALCIUM [Concomitant]
     Active Substance: CALCIUM
     Dosage: 500 (1250) MG
  2. MULTIVITAMINES [Concomitant]
     Active Substance: VITAMINS
     Dosage: DAILY
  3. PLAQUENIL [Concomitant]
     Active Substance: HYDROXYCHLOROQUINE SULFATE
  4. ASPIRINE [Concomitant]
     Active Substance: ASPIRIN
  5. OXERVATE [Suspect]
     Active Substance: CENEGERMIN-BKBJ
     Indication: NEUROTROPHIC KERATOPATHY
     Route: 047
     Dates: start: 202012
  6. EFFEXOR XR [Concomitant]
     Active Substance: VENLAFAXINE HYDROCHLORIDE

REACTIONS (1)
  - Eye pain [Not Recovered/Not Resolved]
